FAERS Safety Report 7408092-2 (Version None)
Quarter: 2011Q2

REPORT INFORMATION
  Report Type: 
  Country: None (occurrence: None)
  Receive Date: 20110412
  Receipt Date: 20110401
  Transmission Date: 20111010
  Serious: Yes (Other)
  Sender: FDA-Public Use
  Company Number: FR-SANOFI-AVENTIS-2011SA020288

PATIENT
  Age: 70 Year
  Sex: Female

DRUGS (8)
  1. LOVENOX [Suspect]
     Route: 058
     Dates: start: 20100810, end: 20100908
  2. RIFATER [Suspect]
     Dosage: DOSE:2 UNIT(S)
     Route: 048
     Dates: start: 20100822, end: 20100917
  3. ZOCOR [Concomitant]
     Route: 048
  4. NOROXIN [Suspect]
     Route: 048
     Dates: start: 20100901, end: 20100910
  5. TOPALGIC [Concomitant]
     Route: 048
     Dates: start: 20100815
  6. LODOZ [Concomitant]
     Route: 048
  7. RIFATER [Suspect]
     Indication: TUBERCULOSIS
     Dosage: DOSE:2 UNIT(S)
     Route: 048
     Dates: start: 20100817
  8. LEXOMIL [Concomitant]
     Dosage: DOSE:0.5 UNIT(S)
     Route: 048

REACTIONS (2)
  - LEUKOPENIA [None]
  - VOMITING [None]
